FAERS Safety Report 17448706 (Version 1)
Quarter: 2020Q1

REPORT INFORMATION
  Report Type: Spontaneous
  Country: CN (occurrence: CN)
  Receive Date: 20200224
  Receipt Date: 20200224
  Transmission Date: 20200409
  Serious: Yes (Death, Other)
  Sender: FDA-Public Use
  Company Number: CN-SUN PHARMACEUTICAL INDUSTRIES LTD-2020R1-237520

PATIENT
  Age: 48 Year
  Sex: Male

DRUGS (4)
  1. RITUXIMAB. [Suspect]
     Active Substance: RITUXIMAB
     Indication: BRONCHOPULMONARY ASPERGILLOSIS
     Dosage: 600 MG
     Route: 065
  2. CYCLOPHOSPHAMIDE. [Suspect]
     Active Substance: CYCLOPHOSPHAMIDE
     Indication: BRONCHOPULMONARY ASPERGILLOSIS
     Dosage: 0.4G
     Route: 065
  3. VINDESINE [Suspect]
     Active Substance: VINDESINE
     Indication: BRONCHOPULMONARY ASPERGILLOSIS
     Dosage: 4 MG
     Route: 065
  4. DEXAMETHASONE. [Suspect]
     Active Substance: DEXAMETHASONE
     Indication: BRONCHOPULMONARY ASPERGILLOSIS
     Dosage: 20 MG
     Route: 065

REACTIONS (3)
  - Condition aggravated [Fatal]
  - Respiratory failure [Fatal]
  - Lymphadenopathy [Unknown]
